FAERS Safety Report 13359908 (Version 6)
Quarter: 2017Q4

REPORT INFORMATION
  Report Type: Report from Study
  Country: AU (occurrence: AU)
  Receive Date: 20170322
  Receipt Date: 20171009
  Transmission Date: 20180320
  Serious: Yes (Other)
  Sender: FDA-Public Use
  Company Number: AU-JNJFOC-20170320527

PATIENT
  Age: 87 Year
  Sex: Female
  Weight: 46.6 kg

DRUGS (31)
  1. PREDNISONE. [Suspect]
     Active Substance: PREDNISONE
     Indication: DIFFUSE LARGE B-CELL LYMPHOMA
     Route: 048
     Dates: start: 20161117, end: 20170326
  2. COLOXYL WITH SENNA [Concomitant]
     Active Substance: DOCUSATE\SENNOSIDES
     Indication: CONSTIPATION
     Route: 048
     Dates: start: 20161104, end: 20161113
  3. TARGIN [Concomitant]
     Active Substance: NALOXONE HYDROCHLORIDE\OXYCODONE HYDROCHLORIDE
     Indication: SCIATICA
     Dosage: 5/2.5 MG
     Route: 048
     Dates: start: 20161031
  4. TEMAZEPAM. [Concomitant]
     Active Substance: TEMAZEPAM
     Indication: SEDATION
     Route: 048
     Dates: start: 20161111
  5. MACU-VISION [Concomitant]
     Active Substance: ASCORBIC ACID\CUPRIC OXIDE\TOCOPHERSOLAN\ZINC OXIDE
     Indication: CATARACT
     Dosage: 1 TABLET
     Route: 048
  6. IBRUTINIB [Suspect]
     Active Substance: IBRUTINIB
     Indication: DIFFUSE LARGE B-CELL LYMPHOMA
     Dosage: FREQUENCY, DAY 1 TO 21 PER CYCLE
     Route: 048
     Dates: start: 20161117
  7. VINCRISTINE [Suspect]
     Active Substance: VINCRISTINE
     Indication: DIFFUSE LARGE B-CELL LYMPHOMA
     Dosage: 1X PER CYCLE 1-6??CONTINUED (6 TO 8 CYCLE)
     Route: 042
     Dates: start: 20161117, end: 20170322
  8. PREDNISONE. [Suspect]
     Active Substance: PREDNISONE
     Indication: DIFFUSE LARGE B-CELL LYMPHOMA
     Dosage: PRETREATMENT PHASE
     Route: 048
     Dates: start: 20161113, end: 20161116
  9. LYRICA [Concomitant]
     Active Substance: PREGABALIN
     Indication: NEURALGIA
     Route: 048
     Dates: start: 20161209, end: 20170412
  10. MOVICOL [Concomitant]
     Active Substance: POLYETHYLENE GLYCOL 3350\POTASSIUM CHLORIDE\SODIUM BICARBONATE\SODIUM CHLORIDE
     Indication: CONSTIPATION
     Dosage: 10/5 MG TWICE A DAY
     Route: 048
     Dates: start: 20160104
  11. IBRUTINIB [Suspect]
     Active Substance: IBRUTINIB
     Indication: DIFFUSE LARGE B-CELL LYMPHOMA
     Dosage: FREQUENCY, DAY 1 TO 21 PER CYCLE
     Route: 048
     Dates: start: 20170313, end: 20170313
  12. CYCLOPHOSPHAMIDE. [Suspect]
     Active Substance: CYCLOPHOSPHAMIDE
     Indication: DIFFUSE LARGE B-CELL LYMPHOMA
     Dosage: ONCE EVERY CYCLE
     Route: 042
     Dates: start: 20170322, end: 20170322
  13. OXYCODONE [Concomitant]
     Active Substance: OXYCODONE
     Indication: PAIN
     Dosage: 10/5 MG TWICE A DAY
     Route: 048
     Dates: start: 20161209
  14. IBRUTINIB [Suspect]
     Active Substance: IBRUTINIB
     Indication: DIFFUSE LARGE B-CELL LYMPHOMA
     Dosage: FREQUENCY, DAY 1 TO 21 PER CYCLE
     Route: 048
     Dates: end: 20170316
  15. DOXORUBICIN [Suspect]
     Active Substance: DOXORUBICIN
     Indication: DIFFUSE LARGE B-CELL LYMPHOMA
     Dosage: ONCE EVERY CYCLE
     Route: 042
     Dates: start: 20160322, end: 20170322
  16. PREDNISONE. [Suspect]
     Active Substance: PREDNISONE
     Indication: DIFFUSE LARGE B-CELL LYMPHOMA
     Dosage: D1-D5 OF CYCLE??CONTINUED (6 TO 8 CYCLE)
     Route: 048
     Dates: start: 20170326, end: 20170326
  17. CHOLECALCIFEROL [Concomitant]
     Active Substance: CHOLECALCIFEROL
     Indication: VITAMIN D DEFICIENCY
     Route: 048
     Dates: start: 20161122
  18. RITUXIMAB. [Suspect]
     Active Substance: RITUXIMAB
     Indication: DIFFUSE LARGE B-CELL LYMPHOMA
     Dosage: 1X PER CYCLE 1-8
     Route: 042
     Dates: end: 20170503
  19. BETADINE [Concomitant]
     Active Substance: POVIDONE-IODINE
     Indication: ORAL PAIN
     Dosage: PRN
     Route: 048
  20. RITUXIMAB. [Suspect]
     Active Substance: RITUXIMAB
     Indication: DIFFUSE LARGE B-CELL LYMPHOMA
     Route: 042
     Dates: start: 20161118, end: 20170412
  21. PREDNISONE. [Suspect]
     Active Substance: PREDNISONE
     Indication: DIFFUSE LARGE B-CELL LYMPHOMA
     Route: 048
     Dates: start: 20161108
  22. PANTOPRAZOLE [Concomitant]
     Active Substance: PANTOPRAZOLE
     Indication: GASTROINTESTINAL DISORDER THERAPY
     Dates: start: 20161112
  23. PARACETAMOL [Concomitant]
     Active Substance: ACETAMINOPHEN
     Indication: PAIN
     Route: 048
     Dates: start: 20161104
  24. NALOXONE W/OXYCODONE [Concomitant]
     Active Substance: NALOXONE HYDROCHLORIDE\OXYCODONE HYDROCHLORIDE
     Indication: PAIN
     Route: 048
     Dates: start: 20161209
  25. ASCORBIC ACID. [Concomitant]
     Active Substance: ASCORBIC ACID
     Indication: ANAEMIA
     Dosage: 10/5 MG TWICE A DAY
     Route: 048
     Dates: start: 20161122
  26. CYCLOPHOSPHAMIDE. [Suspect]
     Active Substance: CYCLOPHOSPHAMIDE
     Indication: DIFFUSE LARGE B-CELL LYMPHOMA
     Dosage: 1X PER CYCLE 1-6??CONTINUED (6 TO 8 CYCLE)
     Route: 042
     Dates: start: 20161117, end: 20170322
  27. DOXORUBICIN [Suspect]
     Active Substance: DOXORUBICIN
     Indication: DIFFUSE LARGE B-CELL LYMPHOMA
     Dosage: 1X PER CYLCE 1-6??CONTINUED (6 TO 8 CYCLE)
     Route: 042
     Dates: start: 20161117, end: 20170322
  28. VINCRISTINE [Suspect]
     Active Substance: VINCRISTINE
     Indication: DIFFUSE LARGE B-CELL LYMPHOMA
     Dosage: ONCE EVERY CYCLE
     Route: 042
     Dates: start: 20160322, end: 20170322
  29. FERROUS SULFATE EXSICCATED [Concomitant]
     Indication: ANAEMIA
     Route: 048
     Dates: start: 20161122
  30. LYRICA [Concomitant]
     Active Substance: PREGABALIN
     Indication: NEURALGIA
     Route: 048
  31. NALOXONE W/OXYCODONE [Concomitant]
     Active Substance: NALOXONE HYDROCHLORIDE\OXYCODONE HYDROCHLORIDE
     Indication: PAIN
     Dosage: 10/5 MG TWICE A DAY
     Route: 048
     Dates: start: 20161209

REACTIONS (1)
  - Left atrial dilatation [Recovering/Resolving]

NARRATIVE: CASE EVENT DATE: 20170313
